FAERS Safety Report 9301408 (Version 1)
Quarter: 2013Q2

REPORT INFORMATION
  Report Type: Spontaneous
  Country: US (occurrence: None)
  Receive Date: 20130520
  Receipt Date: 20130520
  Transmission Date: 20140414
  Serious: No
  Sender: FDA-Public Use
  Company Number: None

PATIENT
  Age: 54 Year
  Sex: Female

DRUGS (1)
  1. AFINITOR [Suspect]
     Indication: BREAST NEOPLASM
     Route: 048
     Dates: start: 20130309, end: 20130601

REACTIONS (3)
  - Headache [None]
  - Eye pain [None]
  - Immunodeficiency [None]
